FAERS Safety Report 7016741-6 (Version None)
Quarter: 2010Q3

REPORT INFORMATION
  Report Type: 
  Country: None (occurrence: None)
  Receive Date: 20100927
  Receipt Date: 20100917
  Transmission Date: 20110219
  Serious: Yes (Other)
  Sender: FDA-Public Use
  Company Number: DE-GILEAD-2010-0031963

PATIENT
  Sex: Male

DRUGS (2)
  1. TRUVADA [Suspect]
     Indication: HIV INFECTION
  2. KALETRA [Concomitant]
     Indication: HIV INFECTION

REACTIONS (3)
  - BONE DENSITY DECREASED [None]
  - OSTEOMALACIA [None]
  - OSTEONECROSIS [None]
